FAERS Safety Report 11923323 (Version 1)
Quarter: 2016Q1

REPORT INFORMATION
  Report Type: Other
  Country: DE (occurrence: DE)
  Receive Date: 20160118
  Receipt Date: 20160118
  Transmission Date: 20160526
  Serious: Yes (Other)
  Sender: FDA-Public Use
  Company Number: DE-LUPIN PHARMACEUTICALS INC.-E2B_00004423

PATIENT
  Age: 1 Day
  Sex: Male
  Weight: 3.6 kg

DRUGS (3)
  1. SERTRALINE [Suspect]
     Active Substance: SERTRALINE HYDROCHLORIDE
     Indication: DEPRESSION
     Dosage: 100 [MG/D ]/ VARYING BETWEEN 50 -100MG/D
     Route: 064
     Dates: start: 20140919, end: 20150622
  2. GRIPPEIMPFSTOFF [Concomitant]
     Active Substance: INFLUENZA VIRUS VACCINE
     Indication: IMMUNISATION
     Route: 064
  3. FOLSAN [Concomitant]
     Active Substance: FOLIC ACID
     Indication: PROPHYLAXIS OF NEURAL TUBE DEFECT
     Route: 064
     Dates: start: 20140919, end: 20150622

REACTIONS (3)
  - Respiratory disorder neonatal [Recovered/Resolved]
  - Foetal exposure during pregnancy [Unknown]
  - Infantile apnoea [Recovered/Resolved]

NARRATIVE: CASE EVENT DATE: 20150622
